FAERS Safety Report 21158800 (Version 1)
Quarter: 2022Q3

REPORT INFORMATION
  Report Type: Spontaneous
  Country: US (occurrence: US)
  Receive Date: 20220802
  Receipt Date: 20220802
  Transmission Date: 20221026
  Serious: Yes (Death, Other)
  Sender: FDA-Public Use
  Company Number: US-BRISTOL-MYERS SQUIBB COMPANY-2022-082934

PATIENT
  Age: 61 Year
  Sex: Male

DRUGS (1)
  1. OPDIVO [Suspect]
     Active Substance: NIVOLUMAB
     Indication: Hepatocellular carcinoma
     Dosage: DOSE : 480 MG;     FREQ : EVERY 4 WEEKS? 2 X 240 MG VIALS
     Route: 065
     Dates: start: 20220513

REACTIONS (1)
  - Death [Fatal]

NARRATIVE: CASE EVENT DATE: 20220620
